FAERS Safety Report 9036222 (Version 4)
Quarter: 2013Q1

REPORT INFORMATION
  Report Type: Spontaneous
  Country: BR (occurrence: BR)
  Receive Date: 20130129
  Receipt Date: 20130319
  Transmission Date: 20140127
  Serious: Yes (Other)
  Sender: FDA-Public Use
  Company Number: PHHY2013BR008117

PATIENT
  Sex: Male
  Weight: 89 kg

DRUGS (4)
  1. RASILEZ HCT [Suspect]
     Indication: HYPERTENSION
     Dosage: 1 DF (300MG ALISK/12.5MG HYDRO), QD MORNING
     Route: 048
     Dates: start: 201109
  2. GALVUS MET [Suspect]
     Indication: TYPE 2 DIABETES MELLITUS
     Dosage: 2 DF (1000MG METF/50 MG VILDA), QD MORNING
     Route: 048
     Dates: start: 201109
  3. DIAMICRON [Suspect]
     Indication: TYPE 2 DIABETES MELLITUS
     Dosage: UNK UKN, QD MORNING
     Dates: start: 201109
  4. MANIVASC [Suspect]
     Indication: HYPERTENSION
     Dosage: UNK UKN, QD MORNING
     Dates: start: 201109

REACTIONS (4)
  - Blood pressure increased [Not Recovered/Not Resolved]
  - Blood glucose increased [Not Recovered/Not Resolved]
  - Vision blurred [Not Recovered/Not Resolved]
  - Headache [Not Recovered/Not Resolved]
